FAERS Safety Report 4471736-1 (Version None)
Quarter: 2004Q4

REPORT INFORMATION
  Report Type: 
  Country: None (occurrence: None)
  Receive Date: 20041012
  Receipt Date: 20041008
  Transmission Date: 20050328
  Serious: Yes (Death)
  Sender: FDA-Public Use
  Company Number: GR-MERCK-0410GRC00012

PATIENT
  Age: 56 Year
  Sex: Male

DRUGS (4)
  1. [THERAPY UNSPECIFIED] [Concomitant]
     Indication: PROPHYLAXIS AGAINST GASTROINTESTINAL ULCER
     Route: 065
  2. ASPIRIN [Concomitant]
     Route: 048
  3. VIOXX [Suspect]
     Indication: BACK PAIN
     Route: 048
     Dates: start: 20040501, end: 20040501
  4. SIMVASTATIN [Concomitant]
     Indication: HYPERLIPIDAEMIA
     Route: 048
     Dates: start: 20010101

REACTIONS (1)
  - ACUTE MYOCARDIAL INFARCTION [None]
